FAERS Safety Report 4272879-8 (Version None)
Quarter: 2004Q1

REPORT INFORMATION
  Report Type: 
  Country: None (occurrence: None)
  Receive Date: 20040114
  Receipt Date: 20040107
  Transmission Date: 20041129
  Serious: Yes (Hospitalization, Other)
  Sender: FDA-Public Use
  Company Number: US-SHR-03-015287

PATIENT
  Age: 58 Year
  Sex: Female
  Weight: 51.2 kg

DRUGS (7)
  1. BETASERON [Suspect]
     Indication: MULTIPLE SCLEROSIS
     Dosage: 8 MIU, EVERY 2D, SUBCUTANEOUS
     Route: 058
     Dates: start: 19940901
  2. DETROL [Concomitant]
  3. PRILOSEC [Concomitant]
  4. BACLOFEN [Concomitant]
  5. LASIX [Concomitant]
  6. POTASSIUM (POTASSIUM) [Concomitant]
  7. PRIMIDONE [Concomitant]

REACTIONS (5)
  - CLOSTRIDIUM COLITIS [None]
  - OSTEOPOROSIS [None]
  - OSTEOPOROTIC FRACTURE [None]
  - SPINAL CORD DISORDER [None]
  - WOUND INFECTION STAPHYLOCOCCAL [None]
